FAERS Safety Report 8539465-2 (Version None)
Quarter: 2012Q3

REPORT INFORMATION
  Report Type: 
  Country: None (occurrence: None)
  Receive Date: 20120726
  Receipt Date: 20120718
  Transmission Date: 20120928
  Serious: Yes (Other)
  Sender: FDA-Public Use
  Company Number: CA-JNJFOC-20120702403

PATIENT
  Sex: Female
  Weight: 110 kg

DRUGS (8)
  1. DILAUDID [Concomitant]
     Route: 065
  2. IMITREX [Concomitant]
     Route: 065
  3. ALL OTHER THERAPEUTIC PRODUCTS [Concomitant]
     Route: 065
  4. ZANTAC [Concomitant]
     Route: 065
  5. CYCLOMEN [Concomitant]
     Route: 065
  6. REMICADE [Suspect]
     Indication: CROHN'S DISEASE
     Route: 042
  7. VITAMIN B-12 [Concomitant]
     Route: 065
  8. PAXIL [Concomitant]
     Route: 065

REACTIONS (3)
  - WOUND SECRETION [None]
  - ALOPECIA [None]
  - HAEMORRHOIDS [None]
